FAERS Safety Report 18038769 (Version 1)
Quarter: 2020Q3

REPORT INFORMATION
  Report Type: Spontaneous
  Country: US (occurrence: US)
  Receive Date: 20200717
  Receipt Date: 20200717
  Transmission Date: 20201103
  Serious: No
  Sender: FDA-Public Use
  Company Number: NVSC2020US195290

PATIENT
  Sex: Female

DRUGS (1)
  1. ILARIS [Suspect]
     Active Substance: CANAKINUMAB
     Indication: PYREXIA
     Dosage: 91.5 MG, Q4W
     Route: 058

REACTIONS (2)
  - Incorrect dose administered [Not Recovered/Not Resolved]
  - Accidental overdose [Not Recovered/Not Resolved]
